FAERS Safety Report 8060466-5 (Version None)
Quarter: 2012Q1

REPORT INFORMATION
  Report Type: 
  Country: None (occurrence: None)
  Receive Date: 20120120
  Receipt Date: 20120113
  Transmission Date: 20120608
  Serious: Yes (Hospitalization)
  Sender: FDA-Public Use
  Company Number: US-GLAXOSMITHKLINE-Z0013731A

PATIENT
  Age: 63 Year
  Sex: Male
  Weight: 84.7 kg

DRUGS (2)
  1. PAZOPANIB [Suspect]
     Indication: RENAL CELL CARCINOMA
     Dosage: 600MG PER DAY
     Route: 048
     Dates: start: 20111024
  2. OXYCODONE/ACETAMINOPHEN [Concomitant]
     Indication: ABDOMINAL PAIN
     Dosage: 5MG FOUR TIMES PER DAY
     Route: 048
     Dates: start: 20120110, end: 20120112

REACTIONS (1)
  - SMALL INTESTINAL OBSTRUCTION [None]
